FAERS Safety Report 13725006 (Version 1)
Quarter: 2017Q3

REPORT INFORMATION
  Report Type: Spontaneous
  Country: FR (occurrence: FR)
  Receive Date: 20170706
  Receipt Date: 20170706
  Transmission Date: 20171127
  Serious: Yes (Other)
  Sender: FDA-Public Use
  Company Number: FR-BAYER-2017-128472

PATIENT
  Age: 46 Year
  Sex: Female

DRUGS (1)
  1. MIRENA [Suspect]
     Active Substance: LEVONORGESTREL
     Indication: CONTRACEPTION
     Dosage: 20 MCG/24HR, CONT
     Route: 015

REACTIONS (10)
  - Palpitations [Unknown]
  - Irritability [Unknown]
  - Blindness [Unknown]
  - Acne [Unknown]
  - Anxiety [Unknown]
  - Libido disorder [Unknown]
  - Depression [Unknown]
  - Amnesia [Unknown]
  - Fatigue [Unknown]
  - Back pain [Unknown]
